FAERS Safety Report 19327157 (Version 1)
Quarter: 2021Q2

REPORT INFORMATION
  Report Type: Spontaneous
  Country: US (occurrence: US)
  Receive Date: 20210528
  Receipt Date: 20210528
  Transmission Date: 20210717
  Serious: Yes (Other)
  Sender: FDA-Public Use
  Company Number: US-INDIVIOR US-INDV-128579-2021

PATIENT
  Sex: Female

DRUGS (2)
  1. BUPRENORPHINE. [Suspect]
     Active Substance: BUPRENORPHINE
     Indication: DRUG DEPENDENCE
     Dosage: UNK
     Route: 065
  2. 8?TETRAHYDROCANNABINOL [Suspect]
     Active Substance: .DELTA.8-TETRAHYDROCANNABINOL
     Indication: PRODUCT USED FOR UNKNOWN INDICATION
     Dosage: UNK
     Route: 065

REACTIONS (5)
  - Hepatitis C [Unknown]
  - Substance abuse [Unknown]
  - Maternal exposure during pregnancy [Recovered/Resolved]
  - Foetal growth restriction [Recovered/Resolved]
  - Premature delivery [Recovered/Resolved]

NARRATIVE: CASE EVENT DATE: 201610
